FAERS Safety Report 16344504 (Version 2)
Quarter: 2019Q3

REPORT INFORMATION
  Report Type: Spontaneous
  Country: US (occurrence: US)
  Receive Date: 20190522
  Receipt Date: 20190822
  Transmission Date: 20191004
  Serious: Yes (Life-Threatening, Hospitalization)
  Sender: FDA-Public Use
  Company Number: US-VERTEX PHARMACEUTICALS-2019-004489

PATIENT
  Age: 17 Year
  Sex: Male
  Weight: 67 kg

DRUGS (19)
  1. TOBI [Concomitant]
     Active Substance: TOBRAMYCIN
     Dosage: TAKE 4 CAPSULES BY PODHALER TWICE DAILY
  2. BACTRIM DS [Concomitant]
     Active Substance: SULFAMETHOXAZOLE\TRIMETHOPRIM
  3. CAYSTON [Concomitant]
     Active Substance: AZTREONAM
     Dosage: 75 MG BY ALTERA NEBULIZER THREE TIMES DAILY
  4. PEDIASURE [NUTRIENTS NOS] [Concomitant]
     Dosage: 1 CAN DAILY
  5. LORATADINE. [Concomitant]
     Active Substance: LORATADINE
     Dosage: 1 TABLET BY MOUTH ONCE DAILY FOR ALLERGIES
     Route: 048
  6. SYMDEKO [Suspect]
     Active Substance: IVACAFTOR\TEZACAFTOR
     Indication: CYSTIC FIBROSIS
     Dosage: 100 MG TEZACAFTOR/ 150 MG IVACAFTOR AM; 150 MG IVACAFTOR PM
     Route: 048
     Dates: start: 20180321
  7. FLONASE ALLERGY RELIEF [Concomitant]
     Active Substance: FLUTICASONE PROPIONATE
     Dosage: 1 SPRAY EACH NOSTRIL DAILY FOR ALLERGIES
  8. PROZAC [Concomitant]
     Active Substance: FLUOXETINE HYDROCHLORIDE
     Dosage: ONE CAP PO Q DAILY
  9. CIPROFLOXACIN. [Concomitant]
     Active Substance: CIPROFLOXACIN
     Route: 048
  10. PROAIR HFA [Concomitant]
     Active Substance: ALBUTEROL SULFATE
     Dosage: 2-4 PUFFS EVERY 4-6 HOURS
  11. SODIUM CHLORIDE. [Concomitant]
     Active Substance: SODIUM CHLORIDE
     Dosage: INHALE ONE VIAL BY NEBULIZER TWICE DAILY
  12. RISPERDAL [Concomitant]
     Active Substance: RISPERIDONE
     Dosage: ONE TAB PO Q HS
  13. FLUOXETINE [Concomitant]
     Active Substance: FLUOXETINE HYDROCHLORIDE
  14. SINGULAIR [Concomitant]
     Active Substance: MONTELUKAST SODIUM
     Dosage: 1 TABLET ONCE DAILY
  15. PULMOZYME [Concomitant]
     Active Substance: DORNASE ALFA
     Dosage: 1 MG/ML, QD
     Route: 055
  16. MIRALAX [Concomitant]
     Active Substance: POLYETHYLENE GLYCOL 3350
     Dosage: ONE CAPFUL IN 4-8 OZ OF LIQUID PO ONCE DAILY
  17. AZITHROMYCIN ANHYDROUS. [Concomitant]
     Active Substance: AZITHROMYCIN ANHYDROUS
     Dosage: 500 MG PO MONDAY, WEDNESDAY, FRIDAY
  18. OMEPRAZOLE. [Concomitant]
     Active Substance: OMEPRAZOLE
     Dosage: 1 CAPSULE BY MOUTH IN AM
     Route: 048
  19. PERTZYE [Concomitant]
     Active Substance: PANCRELIPASE AMYLASE\PANCRELIPASE LIPASE\PANCRELIPASE PROTEASE
     Dosage: 6 CAPSULES BY MOUTH BEFORE EACH MEAL AND 3 CAPSULES
     Route: 048

REACTIONS (2)
  - Intentional overdose [Unknown]
  - Suicide attempt [Unknown]

NARRATIVE: CASE EVENT DATE: 201904
